FAERS Safety Report 8447054-3 (Version None)
Quarter: 2012Q2

REPORT INFORMATION
  Report Type: 
  Country: None (occurrence: None)
  Receive Date: 20120619
  Receipt Date: 20120613
  Transmission Date: 20120825
  Serious: Yes (Hospitalization)
  Sender: FDA-Public Use
  Company Number: PHHY2012JP050819

PATIENT
  Age: 72 Year
  Sex: Male

DRUGS (8)
  1. BEVACIZUMAB [Suspect]
     Indication: METASTASES TO LIVER
  2. FLUOROURACIL [Suspect]
     Indication: COLON CANCER METASTATIC
     Dosage: UNK UKN, UNK
  3. OXALIPLATIN [Suspect]
     Indication: COLON CANCER METASTATIC
     Dosage: UNK UKN, UNK
  4. LEUCOVORIN CALCIUM [Suspect]
     Indication: METASTASES TO LIVER
  5. FLUOROURACIL [Suspect]
     Indication: METASTASES TO LIVER
  6. OXALIPLATIN [Suspect]
     Indication: METASTASES TO LIVER
  7. LEUCOVORIN CALCIUM [Suspect]
     Indication: COLON CANCER METASTATIC
     Dosage: UNK UKN, UNK
  8. BEVACIZUMAB [Suspect]
     Indication: COLON CANCER METASTATIC
     Dosage: UNK UKN, UNK

REACTIONS (6)
  - PSYCHIATRIC SYMPTOM [None]
  - DEMENTIA ALZHEIMER'S TYPE [None]
  - DEMENTIA [None]
  - LEUKOENCEPHALOPATHY [None]
  - CEREBRAL ATROPHY [None]
  - DISEASE PROGRESSION [None]
